FAERS Safety Report 7462919-7 (Version None)
Quarter: 2011Q2

REPORT INFORMATION
  Report Type: 
  Country: None (occurrence: None)
  Receive Date: 20110506
  Receipt Date: 20110418
  Transmission Date: 20111010
  Serious: Yes (Hospitalization, Other)
  Sender: FDA-Public Use
  Company Number: US-BAYER-201033830NA

PATIENT
  Age: 20 Year
  Sex: Female
  Weight: 55.329 kg

DRUGS (8)
  1. MECLIZINE [Concomitant]
  2. YASMIN [Suspect]
     Indication: DYSMENORRHOEA
     Dosage: UNK UNK, UNK
     Route: 065
     Dates: start: 20010901, end: 20021101
  3. MULTI-VITAMINS [Concomitant]
  4. VICODIN [Concomitant]
  5. ACETAMINOPHEN [Concomitant]
  6. VITAMIN C [Concomitant]
  7. ADVIL LIQUI-GELS [Concomitant]
  8. LYSINE [Concomitant]

REACTIONS (4)
  - PULMONARY EMBOLISM [None]
  - POST STROKE DEPRESSION [None]
  - CEREBROVASCULAR ACCIDENT [None]
  - DEEP VEIN THROMBOSIS [None]
